FAERS Safety Report 7396737-5 (Version None)
Quarter: 2011Q1

REPORT INFORMATION
  Report Type: 
  Country: None (occurrence: None)
  Receive Date: 20110331
  Receipt Date: 20110331
  Transmission Date: 20110831
  Serious: Yes (Hospitalization)
  Sender: FDA-Public Use
  Company Number: None

PATIENT
  Age: 64 Year
  Sex: Female
  Weight: 61.2356 kg

DRUGS (17)
  1. CELEBREX [Concomitant]
  2. PREDNISONE [Concomitant]
  3. AMBIEN [Concomitant]
  4. KLOR-CON [Concomitant]
  5. CRESTOR [Concomitant]
  6. XANAX [Concomitant]
  7. DOXYCYLINE HYCLATE [Concomitant]
  8. LYRICA [Concomitant]
  9. LEVOTHYROXINE [Concomitant]
  10. TRAMADOL [Concomitant]
  11. PEPCID [Concomitant]
  12. CALCIUM WITH D [Concomitant]
  13. HUMIRA [Suspect]
     Indication: RHEUMATOID ARTHRITIS
     Dosage: 40MG EVERY 2 WEEKS SQ
     Route: 058
  14. ARAVA [Concomitant]
  15. ACTONEL [Concomitant]
  16. LASIX [Concomitant]
  17. MULTI-VITAMINS [Concomitant]

REACTIONS (5)
  - CONVULSION [None]
  - DEAFNESS [None]
  - BLINDNESS [None]
  - POSTERIOR REVERSIBLE ENCEPHALOPATHY SYNDROME [None]
  - DEPRESSED LEVEL OF CONSCIOUSNESS [None]
